FAERS Safety Report 7041638-5 (Version None)
Quarter: 2010Q4

REPORT INFORMATION
  Report Type: 
  Country: None (occurrence: None)
  Receive Date: 20101013
  Receipt Date: 20090826
  Transmission Date: 20110411
  Serious: No
  Sender: FDA-Public Use
  Company Number: US-ASTRAZENECA-2009SE09909

PATIENT
  Sex: Female
  Weight: 47.6 kg

DRUGS (3)
  1. SYMBICORT [Suspect]
     Indication: CHRONIC OBSTRUCTIVE PULMONARY DISEASE
     Dosage: 160/4.5 UG DOSE, 640 UG DAILY
     Route: 055
     Dates: start: 20090819
  2. TUMS OTC [Concomitant]
  3. DUONEB [Concomitant]

REACTIONS (1)
  - DRY MOUTH [None]
